FAERS Safety Report 21343330 (Version 1)
Quarter: 2022Q3

REPORT INFORMATION
  Report Type: Spontaneous
  Country: CA (occurrence: CA)
  Receive Date: 20220916
  Receipt Date: 20220916
  Transmission Date: 20221027
  Serious: Yes (Hospitalization, Other)
  Sender: FDA-Public Use
  Company Number: CA-BIOVITRUM-2022CA10503

PATIENT
  Age: 47 Year
  Sex: Female

DRUGS (13)
  1. KINERET [Suspect]
     Active Substance: ANAKINRA
     Indication: Product used for unknown indication
     Dosage: INJECT 100 MG UNDER THE SKIN TWO TIMES A  DAY.
  2. XELJANZ [Suspect]
     Active Substance: TOFACITINIB CITRATE
     Indication: Arthritis
     Dosage: UNKNOWN
  3. ELAVIL [Concomitant]
     Active Substance: AMITRIPTYLINE HYDROCHLORIDE
     Dosage: TAKE 10 MG BY MOUTH AT NIGHT IF NEEDED.
  4. ESOMEPRAZOLE MAGNESIUM [Concomitant]
     Active Substance: ESOMEPRAZOLE MAGNESIUM
     Dosage: TAKE 40 MG BY MOUTH ONE TIME EACH BEFORE BREAKFAST. DO NOT OPEN CAPSULE.
  5. DILAUDID [Concomitant]
     Active Substance: HYDROMORPHONE HYDROCHLORIDE
     Indication: Pain
     Dosage: 1 MG TABLET, EVERY FOUR HOURS IF NEEDED
  6. SYNTHROID [Concomitant]
     Active Substance: LEVOTHYROXINE SODIUM
     Dosage: 150 MCG TABLET, TAKE 200 MCG BY MOUTH ONE DAY.
  7. MELOXICAM [Concomitant]
     Active Substance: MELOXICAM
     Indication: Pain
     Dosage: 7.5 MG TABLET, TAKE 1 TABLET (7.5 MG) BY MOUTH 2 TIMES  A DAY IF NEEDED FOR MODERATE PAIN
  8. VENTOLIN HFA INHL [Concomitant]
     Dosage: INHALE 1 PUFF IF NEEDED
  9. SYMBICORT [Concomitant]
     Active Substance: BUDESONIDE\FORMOTEROL FUMARATE DIHYDRATE
     Dosage: INHALE 1 PUFF 2 TIMES A DAY FOR 30 DAYS
  10. ACTEMRA [Concomitant]
     Active Substance: TOCILIZUMAB
  11. CANAKINUMAB [Concomitant]
     Active Substance: CANAKINUMAB
  12. COLCHICINE [Concomitant]
     Active Substance: COLCHICINE
  13. XELJANZ [Suspect]
     Active Substance: TOFACITINIB CITRATE
     Indication: Rash

REACTIONS (38)
  - Renal tubular necrosis [Unknown]
  - Acute kidney injury [Unknown]
  - Pyrexia [Unknown]
  - Back pain [Unknown]
  - Cytopenia [Unknown]
  - Haemolysis [Unknown]
  - Lung opacity [Unknown]
  - Pulmonary embolism [Unknown]
  - Haemophagocytic lymphohistiocytosis [Unknown]
  - Still^s disease [Unknown]
  - Hyperhidrosis [Unknown]
  - Dyspnoea [Unknown]
  - Productive cough [Unknown]
  - Sputum abnormal [Unknown]
  - Pain [Unknown]
  - Symptom recurrence [Unknown]
  - Hypertension [Unknown]
  - Hepatosplenomegaly [Unknown]
  - Blood lactate dehydrogenase increased [Unknown]
  - Serum ferritin increased [Unknown]
  - Anaemia [Unknown]
  - Night sweats [Unknown]
  - Respiratory disorder [Unknown]
  - C-reactive protein increased [Unknown]
  - Red blood cell sedimentation rate increased [Unknown]
  - Blood creatine phosphokinase decreased [Unknown]
  - Crepitations [Unknown]
  - Joint swelling [Unknown]
  - Knee deformity [Unknown]
  - Arthralgia [Unknown]
  - Lymphadenopathy [Unknown]
  - Chest pain [Unknown]
  - Condition aggravated [Unknown]
  - Cough [Unknown]
  - Headache [Unknown]
  - Thrombocytopenia [Unknown]
  - Off label use [Unknown]
  - Drug ineffective for unapproved indication [Unknown]

NARRATIVE: CASE EVENT DATE: 20140101
